FAERS Safety Report 5726750-2 (Version None)
Quarter: 2008Q2

REPORT INFORMATION
  Report Type: 
  Country: None (occurrence: None)
  Receive Date: 20080502
  Receipt Date: 20080502
  Transmission Date: 20081010
  Serious: Yes (Death, Hospitalization, Other)
  Sender: FDA-Public Use
  Company Number: JP-ABBOTT-08P-087-0449674-00

PATIENT
  Age: 45 Year
  Sex: Male

DRUGS (10)
  1. CYCLOSPORINE [Suspect]
     Indication: INTERSTITIAL LUNG DISEASE
     Dosage: DAILY
  2. CYCLOSPORINE [Suspect]
  3. CYCLOSPORINE [Suspect]
  4. PREDNISOLONE ACETATE [Concomitant]
     Indication: INTERSTITIAL LUNG DISEASE
     Dosage: NOT REPORTED
  5. METHYLPREDNISOLONE [Concomitant]
     Indication: INTERSTITIAL LUNG DISEASE
     Dosage: DAILY
  6. CYCLOPHOSPHAMIDE [Concomitant]
     Indication: INTERSTITIAL LUNG DISEASE
     Dosage: DAILY
  7. OXYGEN [Concomitant]
     Indication: INTERSTITIAL LUNG DISEASE
     Dosage: NOT REPORTED
  8. DEXAMETHASONE [Concomitant]
     Indication: INTERSTITIAL LUNG DISEASE
     Dosage: NOT REPORTED
  9. GABEXATE MESILATE [Concomitant]
     Indication: INTERSTITIAL LUNG DISEASE
     Dosage: DAILY
  10. VINCRISTINE [Concomitant]
     Indication: INTERSTITIAL LUNG DISEASE
     Dosage: DAILY

REACTIONS (2)
  - INTERSTITIAL LUNG DISEASE [None]
  - THROMBOTIC THROMBOCYTOPENIC PURPURA [None]
